FAERS Safety Report 23554149 (Version 1)
Quarter: 2024Q1

REPORT INFORMATION
  Report Type: Spontaneous
  Country: GR (occurrence: GR)
  Receive Date: 20240222
  Receipt Date: 20240222
  Transmission Date: 20240410
  Serious: Yes (Hospitalization)
  Sender: FDA-Public Use
  Company Number: GR-Stemline Therapeutics, Inc.-2024ST001144

PATIENT
  Age: 61 Year
  Sex: Female

DRUGS (1)
  1. ORSERDU [Suspect]
     Active Substance: ELACESTRANT
     Indication: Breast cancer
     Dosage: 345MG DAILY PER OS
     Route: 048
     Dates: start: 202309, end: 202402

REACTIONS (2)
  - Renal disorder [Unknown]
  - Disease progression [Not Recovered/Not Resolved]
